FAERS Safety Report 8841657 (Version 1)
Quarter: 2012Q4

REPORT INFORMATION
  Report Type: 
  Country: US (occurrence: US)
  Receive Date: 20121015
  Receipt Date: 20121015
  Transmission Date: 20130627
  Serious: Yes (Other)
  Sender: FDA-Public Use
  Company Number: US-SANOFI-AVENTIS-2012SA072768

PATIENT
  Age: 55 Year
  Sex: Male
  Weight: 90 kg

DRUGS (22)
  1. PLAQUENIL [Suspect]
     Indication: RHEUMATOID ARTHRITIS
     Route: 048
  2. ETANERCEPT [Suspect]
     Indication: RHEUMATOID ARTHRITIS
     Route: 065
  3. ANDROGEL [Suspect]
     Indication: TESTOSTERONE LOW
     Dates: start: 2007
  4. ANDROGEL [Suspect]
     Indication: FATIGUE
     Dates: start: 2007
  5. FOLIC ACID [Concomitant]
  6. OMEPRAZOLE [Concomitant]
     Indication: GASTRIC DISORDER
  7. PROMETHAZINE [Concomitant]
     Indication: NAUSEA
  8. ASPIRIN [Concomitant]
     Indication: CARDIAC DISORDER
  9. UBIDECARENONE [Concomitant]
     Indication: SUPPLEMENTATION THERAPY
  10. CITALOPRAM [Concomitant]
     Indication: DEPRESSION
  11. CARVEDILOL [Concomitant]
     Indication: HYPERTENSION
  12. AMITRIPTYLINE [Concomitant]
     Indication: PAIN
  13. AMITRIPTYLINE [Concomitant]
     Indication: DIFFICULTY SLEEPING
  14. METHADONE [Concomitant]
     Indication: PAIN
  15. LIDOCAINE [Concomitant]
     Indication: PAIN
  16. SIMETICONE [Concomitant]
  17. NAPROXEN SODIUM [Concomitant]
  18. BISACODYL [Concomitant]
     Indication: CONSTIPATION
  19. SUMATRIPTAN [Concomitant]
     Indication: MIGRAINE
  20. VALSARTAN [Concomitant]
  21. PERI-COLACE [Concomitant]
     Indication: CONSTIPATION
  22. FISH OIL [Concomitant]

REACTIONS (8)
  - Ejection fraction abnormal [Unknown]
  - Blood testosterone abnormal [Unknown]
  - Arthralgia [Unknown]
  - Herpes zoster [Recovered/Resolved]
  - Influenza [Recovered/Resolved]
  - Upper respiratory tract infection [Recovered/Resolved]
  - Chills [Recovered/Resolved]
  - Respiratory tract congestion [Recovered/Resolved]
